FAERS Safety Report 23840745 (Version 2)
Quarter: 2024Q2

REPORT INFORMATION
  Report Type: Report from Study
  Country: US (occurrence: None)
  Receive Date: 20240510
  Receipt Date: 20240627
  Transmission Date: 20240716
  Serious: No
  Sender: FDA-Public Use
  Company Number: 2024A106126

PATIENT
  Sex: Female

DRUGS (1)
  1. FASENRA [Suspect]
     Active Substance: BENRALIZUMAB
     Dosage: INJECT 30MG SUBCUTANEOUSLY EVERY 4 WEEKS FOR 3 MONTHS, THEN EVERY 8 WEEKS THEREAFTER30.0MG UNKNOWN
     Route: 058

REACTIONS (2)
  - Insomnia [Unknown]
  - Dizziness [Unknown]
